FAERS Safety Report 11232032 (Version 1)
Quarter: 2015Q2

REPORT INFORMATION
  Report Type: Spontaneous
  Country: US (occurrence: None)
  Receive Date: 20150616
  Receipt Date: 20150616
  Transmission Date: 20150821
  Serious: Yes (Other)
  Sender: FDA-Public Use
  Company Number: 1466287

PATIENT
  Age: 64 Year
  Sex: Female
  Weight: 100.7 kg

DRUGS (6)
  1. SYNTHROID [Concomitant]
     Active Substance: LEVOTHYROXINE SODIUM
  2. METHOTREXATE (METHOTREXATE) [Concomitant]
     Active Substance: METHOTREXATE
  3. PREDNISONE (PREDNISONE) [Concomitant]
     Active Substance: PREDNISONE
  4. ATENOLOL (ATENOLOL) [Concomitant]
     Active Substance: ATENOLOL
  5. ACTEMRA [Suspect]
     Active Substance: TOCILIZUMAB
     Indication: PRODUCT USED FOR UNKNOWN INDICATION
     Dosage: (162 MG, 1) SUBCUTANEOUS
     Route: 058
     Dates: start: 20140909, end: 20140916
  6. FOLIC ACID (FOLIC ACID) [Concomitant]
     Active Substance: FOLIC ACID

REACTIONS (1)
  - Furuncle [None]
